FAERS Safety Report 12342701 (Version 1)
Quarter: 2016Q2

REPORT INFORMATION
  Report Type: Spontaneous
  Country: US (occurrence: US)
  Receive Date: 20160506
  Receipt Date: 20160506
  Transmission Date: 20160815
  Serious: Yes (Other)
  Sender: FDA-Public Use
  Company Number: US-AMGEN-USASP2016055514

PATIENT
  Age: 44 Year
  Sex: Male

DRUGS (2)
  1. ENBREL [Suspect]
     Active Substance: ETANERCEPT
     Indication: PSORIASIS
     Dosage: 50 MG, 2 TIMES/WK
     Route: 065
  2. ENBREL [Suspect]
     Active Substance: ETANERCEPT
     Indication: PSORIATIC ARTHROPATHY

REACTIONS (10)
  - Surgery [Unknown]
  - Incorrect product storage [Unknown]
  - Depression [Unknown]
  - Activities of daily living impaired [Unknown]
  - Poor quality sleep [Unknown]
  - Tenosynovitis [Unknown]
  - Psoriasis [Unknown]
  - Cubital tunnel syndrome [Unknown]
  - Psoriatic arthropathy [Unknown]
  - Neuralgia [Unknown]
